FAERS Safety Report 4667483-3 (Version None)
Quarter: 2005Q2

REPORT INFORMATION
  Report Type: 
  Country: None (occurrence: None)
  Receive Date: 20050520
  Receipt Date: 20050218
  Transmission Date: 20051028
  Serious: No
  Sender: FDA-Public Use
  Company Number: 200511540GDDC

PATIENT
  Age: 56 Year
  Sex: Female
  Weight: 54.7 kg

DRUGS (10)
  1. RIFADIN [Suspect]
     Indication: LYMPH NODE TUBERCULOSIS
     Route: 048
     Dates: start: 20031220
  2. ETHAMBUTOL HCL [Concomitant]
     Indication: LYMPH NODE TUBERCULOSIS
     Route: 048
     Dates: start: 20031220, end: 20040429
  3. PYRAMIDE [Concomitant]
     Indication: LYMPH NODE TUBERCULOSIS
     Route: 048
     Dates: start: 20031220, end: 20040429
  4. CRAVIT [Concomitant]
     Indication: LYMPH NODE TUBERCULOSIS
     Route: 048
     Dates: end: 20040429
  5. NORVASC [Concomitant]
     Indication: HYPERTENSION
     Route: 048
     Dates: end: 20040429
  6. BAYASPIRIN [Concomitant]
     Route: 048
     Dates: end: 20040429
  7. LASIX [Concomitant]
     Indication: HYPERTENSION
     Route: 048
     Dates: end: 20040429
  8. TAKEPRON [Concomitant]
     Route: 048
     Dates: end: 20040429
  9. CALCIUM CARBONATE [Concomitant]
     Indication: RENAL FAILURE CHRONIC
     Route: 048
     Dates: end: 20040429
  10. ISCOTIN [Concomitant]
     Indication: LYMPH NODE TUBERCULOSIS
     Route: 048
     Dates: start: 20031220, end: 20031226

REACTIONS (1)
  - HYPOTHYROIDISM [None]
